FAERS Safety Report 14138840 (Version 4)
Quarter: 2020Q3

REPORT INFORMATION
  Report Type: Spontaneous
  Country: US (occurrence: US)
  Receive Date: 20171027
  Receipt Date: 20200717
  Transmission Date: 20201102
  Serious: No
  Sender: FDA-Public Use
  Company Number: US-ACTELION-A-US2017-161580

PATIENT
  Age: 33 Year
  Sex: Male

DRUGS (4)
  1. ELIQUIS [Concomitant]
     Active Substance: APIXABAN
  2. OPSUMIT [Suspect]
     Active Substance: MACITENTAN
     Indication: PULMONARY ARTERIAL HYPERTENSION
     Dosage: 10 MG, QD
     Route: 048
     Dates: start: 20171020
  3. REMODULIN [Suspect]
     Active Substance: TREPROSTINIL
     Indication: PRODUCT USED FOR UNKNOWN INDICATION
     Dosage: UNK
     Route: 065
  4. ADCIRCA [Concomitant]
     Active Substance: TADALAFIL

REACTIONS (3)
  - Diarrhoea [Unknown]
  - Headache [Unknown]
  - Infusion site oedema [Recovering/Resolving]

NARRATIVE: CASE EVENT DATE: 202006
